FAERS Safety Report 23361115 (Version 1)
Quarter: 2024Q1

REPORT INFORMATION
  Report Type: Spontaneous
  Country: CN (occurrence: None)
  Receive Date: 20240103
  Receipt Date: 20240103
  Transmission Date: 20240410
  Serious: Yes (Other)
  Sender: FDA-Public Use
  Company Number: 2023A295820

PATIENT
  Age: 21549 Day
  Sex: Male
  Weight: 70 kg

DRUGS (3)
  1. CRESTOR [Suspect]
     Active Substance: ROSUVASTATIN CALCIUM
     Indication: Lipids decreased
     Route: 048
     Dates: start: 20231203, end: 20231205
  2. AMIODARONE [Suspect]
     Active Substance: AMIODARONE
     Indication: Heart rate
     Route: 041
     Dates: start: 20231203, end: 20231204
  3. AMIODARONE [Suspect]
     Active Substance: AMIODARONE
     Indication: Heart rate
     Route: 048
     Dates: start: 20231204, end: 20231205

REACTIONS (2)
  - Phlebitis [Recovering/Resolving]
  - Hepatic function abnormal [Recovering/Resolving]
